FAERS Safety Report 6313133-X (Version None)
Quarter: 2009Q3

REPORT INFORMATION
  Report Type: 
  Country: None (occurrence: None)
  Receive Date: 20090814
  Receipt Date: 20090814
  Transmission Date: 20100115
  Serious: Yes (Life-Threatening, Hospitalization)
  Sender: FDA-Public Use
  Company Number: None

PATIENT
  Age: 66 Year
  Sex: Female
  Weight: 105 kg

DRUGS (12)
  1. PROVIGIL [Suspect]
     Indication: SLEEP APNOEA SYNDROME
     Dosage: } 1 YEAR
     Dates: start: 20080101, end: 20090728
  2. ASPIRIN [Concomitant]
  3. CYMBALTA [Concomitant]
  4. DIOVAN [Concomitant]
  5. LASIX [Concomitant]
  6. NEXIUM [Concomitant]
  7. TOPROL-XL [Concomitant]
  8. VERAPAMIL HCL [Concomitant]
  9. COUMADIN [Concomitant]
  10. AMARYL [Concomitant]
  11. TYLENOL SIMPLE SLEEP [Concomitant]
  12. OXYCODONE HS [Concomitant]

REACTIONS (1)
  - VENTRICULAR TACHYCARDIA [None]
